FAERS Safety Report 25505353 (Version 1)
Quarter: 2025Q3

REPORT INFORMATION
  Report Type: Spontaneous
  Country: EU (occurrence: EU)
  Receive Date: 20250702
  Receipt Date: 20250702
  Transmission Date: 20251021
  Serious: Yes (Death, Hospitalization, Other)
  Sender: SANDOZ
  Company Number: EU-CELGENE-FRA-20211200500

PATIENT
  Age: 72 Year
  Sex: Female
  Weight: 50 kg

DRUGS (3)
  1. ABECMA [Suspect]
     Active Substance: IDECABTAGENE VICLEUCEL
     Indication: Plasma cell myeloma
     Route: 042
     Dates: start: 20210831, end: 20210831
  2. CYCLOPHOSPHAMIDE [Suspect]
     Active Substance: CYCLOPHOSPHAMIDE
     Indication: Plasma cell myeloma
     Dosage: 300 MG/M2, QD
     Route: 065
     Dates: start: 20210824, end: 20210826
  3. FLUDARABINE [Suspect]
     Active Substance: FLUDARABINE PHOSPHATE
     Indication: Plasma cell myeloma
     Dosage: 30 MILLIGRAM/SQ. METER
     Route: 065
     Dates: start: 20210824, end: 20210826

REACTIONS (14)
  - Plasma cell myeloma [Fatal]
  - Hypogammaglobulinaemia [Recovered/Resolved]
  - Cytokine release syndrome [Recovered/Resolved]
  - Aneurysm [Recovered/Resolved]
  - Somnolence [Recovered/Resolved]
  - Immune effector cell-associated neurotoxicity syndrome [Recovered/Resolved]
  - Bone marrow failure [Unknown]
  - Cutaneous mucormycosis [Recovered/Resolved]
  - Unevaluable event [Unknown]
  - Fungal infection [Unknown]
  - Nervous system disorder [Unknown]
  - Pulmonary alveolar haemorrhage [Unknown]
  - Thrombocytopenia [Unknown]
  - Cytopenia [Unknown]

NARRATIVE: CASE EVENT DATE: 20210101
